FAERS Safety Report 5995376-8 (Version None)
Quarter: 2008Q4

REPORT INFORMATION
  Report Type: 
  Country: None (occurrence: None)
  Receive Date: 20081212
  Receipt Date: 20081201
  Transmission Date: 20090506
  Serious: Yes (Life-Threatening, Disabling, Other)
  Sender: FDA-Public Use
  Company Number: GB-TEVA-181902ISR

PATIENT
  Age: 67 Year
  Sex: Female

DRUGS (1)
  1. TERBINAFINE HCL [Suspect]
     Indication: NAIL INFECTION
     Route: 048
     Dates: start: 20080714

REACTIONS (1)
  - HYPERCALCAEMIA [None]
